FAERS Safety Report 14812720 (Version 2)
Quarter: 2019Q1

REPORT INFORMATION
  Report Type: Spontaneous
  Country: US (occurrence: US)
  Receive Date: 20180425
  Receipt Date: 20190313
  Transmission Date: 20190417
  Serious: No
  Sender: FDA-Public Use
  Company Number: US-LUPIN PHARMACEUTICALS INC.-2017-05720

PATIENT
  Sex: Male

DRUGS (6)
  1. ZIPRASIDONE HYDROCHLORIDE CAPSULES, 20 MG [Suspect]
     Active Substance: ZIPRASIDONE HYDROCHLORIDE
     Indication: DISRUPTIVE MOOD DYSREGULATION DISORDER
  2. ZIPRASIDONE HYDROCHLORIDE CAPSULES, 20 MG [Suspect]
     Active Substance: ZIPRASIDONE HYDROCHLORIDE
     Indication: ANGER
     Dosage: UNK UNK, BID
     Route: 048
  3. ZIPRASIDONE HYDROCHLORIDE CAPSULES, 20 MG [Suspect]
     Active Substance: ZIPRASIDONE HYDROCHLORIDE
     Indication: OPPOSITIONAL DEFIANT DISORDER
  4. KAPVAY [Concomitant]
     Active Substance: CLONIDINE HYDROCHLORIDE
     Indication: ANXIETY
     Dosage: UNK UNK, BID
     Route: 048
  5. VYVANSE [Concomitant]
     Active Substance: LISDEXAMFETAMINE DIMESYLATE
     Indication: ATTENTION DEFICIT/HYPERACTIVITY DISORDER
     Dosage: 20 MILLIGRAM, QD
     Route: 048
  6. KAPVAY [Concomitant]
     Active Substance: CLONIDINE HYDROCHLORIDE
     Indication: ATTENTION DEFICIT/HYPERACTIVITY DISORDER

REACTIONS (12)
  - Tic [Unknown]
  - Alopecia [Unknown]
  - Infantile back arching [Unknown]
  - Dizziness [Unknown]
  - Adverse reaction [Unknown]
  - Product use complaint [Unknown]
  - Dyskinesia [Unknown]
  - Muscle spasticity [Unknown]
  - Inappropriate affect [Unknown]
  - Wrong technique in product usage process [Unknown]
  - Product use in unapproved indication [Unknown]
  - Incorrect dose administered [Unknown]
